FAERS Safety Report 5759840-9 (Version None)
Quarter: 2008Q2

REPORT INFORMATION
  Report Type: 
  Country: None (occurrence: None)
  Receive Date: 20080605
  Receipt Date: 20080523
  Transmission Date: 20081010
  Serious: Yes (Death, Hospitalization)
  Sender: FDA-Public Use
  Company Number: PHEH2008US04807

PATIENT
  Sex: Female

DRUGS (2)
  1. TASIGNA [Suspect]
     Indication: CHRONIC MYELOID LEUKAEMIA
     Dosage: 400 MG, BID
     Route: 048
     Dates: start: 20080311, end: 20080403
  2. TASIGNA [Suspect]
     Dosage: 400 MG, BID
     Route: 048

REACTIONS (7)
  - ASTHENIA [None]
  - BONE PAIN [None]
  - CHRONIC MYELOID LEUKAEMIA [None]
  - EYELID PTOSIS [None]
  - OPTIC NERVE DISORDER [None]
  - THROMBOCYTOPENIA [None]
  - VISION BLURRED [None]
